FAERS Safety Report 6107655-4 (Version None)
Quarter: 2009Q1

REPORT INFORMATION
  Report Type: 
  Country: None (occurrence: None)
  Receive Date: 20090306
  Receipt Date: 20090306
  Transmission Date: 20090719
  Serious: No
  Sender: FDA-Public Use
  Company Number: None

PATIENT
  Age: 81 Year
  Sex: Female

DRUGS (1)
  1. ROCEPHIN [Suspect]
     Dosage: 1 GM DAILY IV PIGGYBACK
     Route: 042
     Dates: start: 20090210, end: 20090211

REACTIONS (1)
  - RASH ERYTHEMATOUS [None]
